FAERS Safety Report 23998699 (Version 1)
Quarter: 2024Q2

REPORT INFORMATION
  Report Type: Spontaneous
  Country: US (occurrence: US)
  Receive Date: 20240621
  Receipt Date: 20240621
  Transmission Date: 20240716
  Serious: Yes (Other)
  Sender: FDA-Public Use
  Company Number: US-BMS-IMIDS-REMS_SI-11568609

PATIENT
  Sex: Female

DRUGS (1)
  1. LENALIDOMIDE [Suspect]
     Active Substance: LENALIDOMIDE
     Indication: Product used for unknown indication
     Dosage: EXPIRATION DATE: 26-APR-2025
     Route: 048

REACTIONS (3)
  - Pelvic fracture [Unknown]
  - Hypoacusis [Unknown]
  - Off label use [Unknown]
